FAERS Safety Report 23758017 (Version 1)
Quarter: 2024Q2

REPORT INFORMATION
  Report Type: Spontaneous
  Country: CN (occurrence: CN)
  Receive Date: 20240418
  Receipt Date: 20240418
  Transmission Date: 20240716
  Serious: Yes (Other)
  Sender: FDA-Public Use
  Company Number: CN-GUERBET / FUNDTRIP PHARMACEUTICALS-CN-20240101

PATIENT
  Age: 33 Year
  Sex: Male

DRUGS (1)
  1. IOVERSOL [Suspect]
     Active Substance: IOVERSOL
     Indication: Angiocardiogram
     Route: 013

REACTIONS (1)
  - Contrast encephalopathy [Recovered/Resolved]
